FAERS Safety Report 20663606 (Version 1)
Quarter: 2022Q1

REPORT INFORMATION
  Report Type: Spontaneous
  Country: US (occurrence: None)
  Receive Date: 20220331
  Receipt Date: 20220331
  Transmission Date: 20220423
  Serious: No
  Sender: FDA-Public Use
  Company Number: None

PATIENT
  Age: 29 Year
  Sex: Female
  Weight: 54.43 kg

DRUGS (5)
  1. MIRENA [Suspect]
     Active Substance: LEVONORGESTREL
  2. AMITRIPTYLINE [Concomitant]
     Active Substance: AMITRIPTYLINE
  3. XYZAL [Concomitant]
     Active Substance: LEVOCETIRIZINE DIHYDROCHLORIDE
  4. RHINOCORT [Concomitant]
     Active Substance: BUDESONIDE
  5. VITAMINS [Concomitant]
     Active Substance: VITAMINS

REACTIONS (10)
  - Vulvovaginal dryness [None]
  - Pelvic pain [None]
  - Loss of libido [None]
  - Skin irritation [None]
  - Rash [None]
  - Muscle spasms [None]
  - Migraine [None]
  - Mood altered [None]
  - Depression [None]
  - Hair growth abnormal [None]

NARRATIVE: CASE EVENT DATE: 20120101
